FAERS Safety Report 6643043-X (Version None)
Quarter: 2010Q1

REPORT INFORMATION
  Report Type: 
  Country: None (occurrence: None)
  Receive Date: 20100319
  Receipt Date: 20100308
  Transmission Date: 20100710
  Serious: Yes (Hospitalization)
  Sender: FDA-Public Use
  Company Number: D0066747A

PATIENT
  Age: 69 Year
  Sex: Male
  Weight: 100 kg

DRUGS (10)
  1. VALTREX [Suspect]
     Indication: HERPES ZOSTER
     Dosage: 2500MG PER DAY
     Route: 048
     Dates: start: 20091109, end: 20091113
  2. MYFORTIC [Suspect]
     Dosage: 360MG FOUR TIMES PER DAY
     Route: 048
     Dates: start: 20060101
  3. TACROLIMUS [Suspect]
     Dosage: 2.5MG PER DAY
     Route: 048
     Dates: start: 20060101
  4. CARBAMAZEPINE [Suspect]
     Indication: HERPES ZOSTER
     Dosage: 200MG TWICE PER DAY
     Route: 048
     Dates: start: 20091109, end: 20091112
  5. METOHEXAL [Concomitant]
     Indication: HYPERTENSION
     Dosage: 47.5MG TWICE PER DAY
     Route: 048
     Dates: start: 20020101
  6. DILTIAZEM RETARD [Concomitant]
     Dosage: 90MG PER DAY
     Dates: start: 20040101
  7. TORASEMIDE [Concomitant]
     Indication: HYPERTENSION
     Dosage: 25MG PER DAY
     Route: 048
     Dates: start: 20040101
  8. LOCOL [Concomitant]
     Dosage: 80MG PER DAY
     Route: 048
     Dates: start: 20021201
  9. CALCITRIOL [Concomitant]
     Indication: OSTEOPENIA
     Dosage: .25MCG TWICE PER DAY
     Route: 048
     Dates: start: 20040101
  10. MULTIPLE MEDICATION [Concomitant]
     Route: 065

REACTIONS (9)
  - ALTERED STATE OF CONSCIOUSNESS [None]
  - BRAIN STEM SYNDROME [None]
  - CONFUSIONAL STATE [None]
  - DISORIENTATION [None]
  - DIZZINESS [None]
  - GAIT DISTURBANCE [None]
  - ILL-DEFINED DISORDER [None]
  - PNEUMONIA [None]
  - SOMNOLENCE [None]
